FAERS Safety Report 8531513-9 (Version None)
Quarter: 2012Q3

REPORT INFORMATION
  Report Type: 
  Country: None (occurrence: None)
  Receive Date: 20120723
  Receipt Date: 20120718
  Transmission Date: 20120928
  Serious: Yes (Life-Threatening, Disabling, Other)
  Sender: FDA-Public Use
  Company Number: GB-PFIZER INC-2012173073

PATIENT
  Age: 31 Year
  Sex: Female
  Weight: 74.38 kg

DRUGS (1)
  1. VENLAFAXINE HCL [Suspect]
     Indication: ANXIETY
     Dosage: 225 MG, UNK
     Route: 048

REACTIONS (8)
  - DEPRESSION [None]
  - CONFUSIONAL STATE [None]
  - SUICIDAL IDEATION [None]
  - RESTLESS LEGS SYNDROME [None]
  - CONDITION AGGRAVATED [None]
  - INTENTIONAL SELF-INJURY [None]
  - APATHY [None]
  - INSOMNIA [None]
